FAERS Safety Report 25136611 (Version 3)
Quarter: 2025Q2

REPORT INFORMATION
  Report Type: Spontaneous
  Country: JP (occurrence: JP)
  Receive Date: 20250328
  Receipt Date: 20250507
  Transmission Date: 20250716
  Serious: Yes (Death, Hospitalization)
  Sender: TAIHO ONCOLOGY INC
  Company Number: JP-TAIHOP-2025-003310

PATIENT
  Age: 48 Year
  Sex: Male
  Weight: 61.7 kg

DRUGS (9)
  1. LONSURF [Suspect]
     Active Substance: TIPIRACIL HYDROCHLORIDE\TRIFLURIDINE
     Indication: Rectal cancer
     Dosage: DOSE, STRENGTH, FREQUENCY AND CYCLE UNKNOWN.
     Route: 048
     Dates: start: 20240920, end: 20241001
  2. BEVACIZUMAB [Concomitant]
     Active Substance: BEVACIZUMAB
     Indication: Colorectal cancer
  3. ESOMEPRAZOLE [Concomitant]
     Active Substance: ESOMEPRAZOLE
     Indication: Product used for unknown indication
     Dates: start: 20240919
  4. MIYA-BM [Concomitant]
     Active Substance: CLOSTRIDIUM BUTYRICUM SPORES STRAIN M-55
     Indication: Product used for unknown indication
     Dates: start: 20230511
  5. SODIUM FERROUS CITRATE [Concomitant]
     Active Substance: SODIUM FERROUS CITRATE
     Indication: Product used for unknown indication
     Dates: start: 20230112
  6. TRAMADOL [Concomitant]
     Active Substance: TRAMADOL
     Indication: Product used for unknown indication
     Dates: start: 20240808
  7. CELECOXIB [Concomitant]
     Active Substance: CELECOXIB
     Indication: Product used for unknown indication
     Dates: start: 20240919
  8. TENELIGLIPTIN [Concomitant]
     Active Substance: TENELIGLIPTIN
     Indication: Product used for unknown indication
     Dates: start: 20231005
  9. METGLUCO [Concomitant]
     Active Substance: METFORMIN HYDROCHLORIDE
     Indication: Product used for unknown indication
     Dates: start: 20231005

REACTIONS (5)
  - Febrile neutropenia [Fatal]
  - Hyperbilirubinaemia [Fatal]
  - Disseminated intravascular coagulation [Not Recovered/Not Resolved]
  - Dizziness [Unknown]
  - Decreased appetite [Unknown]

NARRATIVE: CASE EVENT DATE: 20241007
